FAERS Safety Report 5373633-6 (Version None)
Quarter: 2007Q2

REPORT INFORMATION
  Report Type: 
  Country: None (occurrence: None)
  Receive Date: 20070628
  Receipt Date: 20070622
  Transmission Date: 20071010
  Serious: Yes (Hospitalization)
  Sender: FDA-Public Use
  Company Number: PHBS2007TW10609

PATIENT
  Age: 53 Year
  Sex: Male
  Weight: 63 kg

DRUGS (1)
  1. DIOVAN HCT [Suspect]
     Indication: HYPERTENSION
     Route: 048
     Dates: start: 20060928

REACTIONS (1)
  - BACTERIAL INFECTION [None]
